FAERS Safety Report 22908877 (Version 3)
Quarter: 2024Q1

REPORT INFORMATION
  Report Type: Spontaneous
  Country: US (occurrence: US)
  Receive Date: 20230905
  Receipt Date: 20240111
  Transmission Date: 20240410
  Serious: Yes (Other)
  Sender: FDA-Public Use
  Company Number: US-BRISTOL-MYERS SQUIBB COMPANY-2023-121854

PATIENT
  Age: 65 Year
  Sex: Female

DRUGS (1)
  1. LENALIDOMIDE [Suspect]
     Active Substance: LENALIDOMIDE
     Indication: Plasma cell myeloma
     Dosage: TAKE 1 CAPSULE BY MOUTH EVERY DAY FOR 21 DAYS ON, FOLLOWED BY 7 DAYS OFF
     Route: 048
     Dates: start: 20221019

REACTIONS (3)
  - Full blood count abnormal [Recovered/Resolved]
  - Neutrophil count decreased [Recovered/Resolved]
  - Product supply issue [Recovering/Resolving]
